FAERS Safety Report 5112815-5 (Version None)
Quarter: 2006Q3

REPORT INFORMATION
  Report Type: 
  Country: None (occurrence: None)
  Receive Date: 20060922
  Receipt Date: 20060914
  Transmission Date: 20061208
  Serious: Yes (Hospitalization)
  Sender: FDA-Public Use
  Company Number: FR-BOEHRINGER INGELHEIM PHARMACEUTICALS, INC.-2006-FF-00844FF

PATIENT
  Age: 85 Year
  Sex: Male
  Weight: 60 kg

DRUGS (9)
  1. CATAPRES [Suspect]
     Route: 048
  2. IKOREL [Concomitant]
     Route: 048
  3. LASIX [Concomitant]
     Route: 048
  4. CELECTOL [Concomitant]
     Route: 048
  5. AMLOR [Concomitant]
     Route: 048
  6. TRINIPATCH [Concomitant]
     Route: 061
     Dates: end: 20060712
  7. MINISINTROM [Concomitant]
  8. LANZOR [Concomitant]
  9. FORADIL [Concomitant]

REACTIONS (11)
  - ATRIOVENTRICULAR BLOCK [None]
  - FALL [None]
  - HAEMATOMA [None]
  - HAEMORRHAGE [None]
  - HYPOTENSION [None]
  - INTERNATIONAL NORMALISED RATIO INCREASED [None]
  - NORMOCHROMIC NORMOCYTIC ANAEMIA [None]
  - PAIN [None]
  - RENAL FAILURE [None]
  - RHABDOMYOLYSIS [None]
  - SUPRAVENTRICULAR EXTRASYSTOLES [None]
